FAERS Safety Report 12751166 (Version 1)
Quarter: 2016Q3

REPORT INFORMATION
  Report Type: Spontaneous
  Country: TN (occurrence: TN)
  Receive Date: 20160915
  Receipt Date: 20160915
  Transmission Date: 20161109
  Serious: No
  Sender: FDA-Public Use
  Company Number: TN-JAZZ-2015-TN-018915

PATIENT
  Age: 8 Year
  Weight: 31 kg

DRUGS (1)
  1. ERWINASE [Suspect]
     Active Substance: ASPARAGINASE ERWINIA CHRYSANTHEMI
     Indication: PRODUCT USED FOR UNKNOWN INDICATION
     Dosage: 25000 IU, UNK
     Dates: start: 20150811, end: 20151019

REACTIONS (2)
  - Urticaria [Unknown]
  - Face oedema [Unknown]

NARRATIVE: CASE EVENT DATE: 20151019
